FAERS Safety Report 25650403 (Version 2)
Quarter: 2025Q3

REPORT INFORMATION
  Report Type: Spontaneous
  Country: EU (occurrence: EU)
  Receive Date: 20250806
  Receipt Date: 20250808
  Transmission Date: 20251020
  Serious: Yes (Hospitalization, Other)
  Sender: PFIZER
  Company Number: EU-PFM-2025-03683

PATIENT
  Age: 78 Year
  Sex: Female

DRUGS (5)
  1. ENCORAFENIB [Suspect]
     Active Substance: ENCORAFENIB
     Indication: Metastatic malignant melanoma
     Dosage: 300 MG/DAY
     Route: 065
     Dates: start: 20240904
  2. ENCORAFENIB [Suspect]
     Active Substance: ENCORAFENIB
     Route: 065
  3. CETUXIMAB [Suspect]
     Active Substance: CETUXIMAB
     Indication: Metastatic malignant melanoma
     Dosage: 570 MG, WEEKLY, LOADING DOSE
     Route: 065
     Dates: start: 20240904
  4. CETUXIMAB [Suspect]
     Active Substance: CETUXIMAB
     Dosage: 280 MG, WEEKLY MAINTENANCE
     Route: 065
  5. CETUXIMAB [Suspect]
     Active Substance: CETUXIMAB
     Route: 065

REACTIONS (1)
  - Acute respiratory failure [Recovered/Resolved]
